FAERS Safety Report 11731850 (Version 3)
Quarter: 2016Q1

REPORT INFORMATION
  Report Type: Report from Study
  Country: PH (occurrence: PH)
  Receive Date: 20151113
  Receipt Date: 20160122
  Transmission Date: 20160525
  Serious: Yes (Hospitalization, Other)
  Sender: FDA-Public Use
  Company Number: PH-ASTRAZENECA-2015SF08819

PATIENT
  Age: 27272 Day
  Sex: Male
  Weight: 64 kg

DRUGS (3)
  1. FELODIPINE. [Concomitant]
     Active Substance: FELODIPINE
     Indication: HYPERTENSION
     Route: 048
     Dates: start: 2005
  2. TICAGRELOR [Suspect]
     Active Substance: TICAGRELOR
     Indication: PERIPHERAL ARTERIAL OCCLUSIVE DISEASE
     Route: 048
     Dates: start: 20131201, end: 20151026
  3. LOSARTAN POTASSIUM. [Concomitant]
     Active Substance: LOSARTAN POTASSIUM
     Indication: HYPERTENSION
     Route: 048
     Dates: start: 2005

REACTIONS (2)
  - Cardiac failure congestive [Recovered/Resolved]
  - Pneumonia [Recovered/Resolved]

NARRATIVE: CASE EVENT DATE: 20151023
